FAERS Safety Report 24889669 (Version 2)
Quarter: 2025Q1

REPORT INFORMATION
  Report Type: Report from Study
  Country: US (occurrence: US)
  Receive Date: 20250127
  Receipt Date: 20250227
  Transmission Date: 20250409
  Serious: No
  Sender: SANDOZ
  Company Number: US-SANDOZ-SDZ2024US086807

PATIENT
  Age: 11 Year
  Sex: Male

DRUGS (4)
  1. OMNITROPE [Suspect]
     Active Substance: SOMATROPIN
     Indication: Hypopituitarism
     Dosage: 0.8 MG, QD,( 2 DOSE EVERY), STRENGTH: 10 MG/1.5 ML
     Route: 058
     Dates: start: 20241010, end: 20241010
  2. OMNITROPE [Suspect]
     Active Substance: SOMATROPIN
     Indication: Hypopituitarism
     Dosage: 0.8 MG, QD,( 2 DOSE EVERY), STRENGTH: 10 MG/1.5 ML
     Route: 058
     Dates: start: 20241010, end: 20241010
  3. OMNITROPE [Suspect]
     Active Substance: SOMATROPIN
     Dosage: 0.8 MG, QD
     Route: 058
  4. OMNITROPE [Suspect]
     Active Substance: SOMATROPIN
     Dosage: 0.8 MG, QD
     Route: 058

REACTIONS (4)
  - Incorrect dose administered by device [Unknown]
  - Product after taste [Unknown]
  - Inadvertent injection air bubble [Unknown]
  - Needle issue [Unknown]

NARRATIVE: CASE EVENT DATE: 20241010
